FAERS Safety Report 5734008-0 (Version None)
Quarter: 2008Q2

REPORT INFORMATION
  Report Type: 
  Country: None (occurrence: None)
  Receive Date: 20080509
  Receipt Date: 20080505
  Transmission Date: 20081010
  Serious: Yes (Disabling, Other)
  Sender: FDA-Public Use
  Company Number: BR-ELI_LILLY_AND_COMPANY-BR200804004875

PATIENT
  Age: 59 Year
  Sex: Female
  Weight: 63 kg

DRUGS (3)
  1. HUMALOG MIX 75/25 [Suspect]
     Indication: DIABETES MELLITUS
     Dosage: UNK, UNKNOWN
     Route: 065
     Dates: start: 20070707
  2. PURAN T4 [Concomitant]
     Indication: HYPOTHYROIDISM
     Dosage: 100 MG, UNKNOWN
     Route: 065
  3. AZUKON [Concomitant]
     Indication: DIABETES MELLITUS
     Dosage: 30 MG, UNKNOWN
     Route: 065

REACTIONS (17)
  - ABDOMINAL DISTENSION [None]
  - AMNESIA [None]
  - ASTHENIA [None]
  - DIZZINESS [None]
  - DYSPNOEA [None]
  - ELEVATED MOOD [None]
  - FATIGUE [None]
  - HEADACHE [None]
  - HYPOACUSIS [None]
  - HYPOGLYCAEMIA [None]
  - INFARCTION [None]
  - INSOMNIA [None]
  - IRRITABILITY [None]
  - PAIN IN EXTREMITY [None]
  - PALPITATIONS [None]
  - TACHYCARDIA [None]
  - WEIGHT INCREASED [None]
